FAERS Safety Report 23769324 (Version 1)
Quarter: 2024Q2

REPORT INFORMATION
  Report Type: Spontaneous
  Country: DE (occurrence: DE)
  Receive Date: 20240422
  Receipt Date: 20240422
  Transmission Date: 20240715
  Serious: Yes (Other)
  Sender: FDA-Public Use
  Company Number: DE-TEVA-2023-DE-2942860

PATIENT
  Age: 63 Year
  Sex: Female

DRUGS (2)
  1. ESOMEPRAZOLE [Suspect]
     Active Substance: ESOMEPRAZOLE
     Indication: Product used for unknown indication
     Dosage: 20 MILLIGRAM, GASTRO-RESISTANT CAPSULE, HARD
     Route: 048
  2. L-thyrox euro [Concomitant]
     Dosage: UNK
     Route: 065

REACTIONS (3)
  - Oesophageal obstruction [Unknown]
  - Dysphagia [Unknown]
  - Wrong technique in product usage process [Unknown]
